FAERS Safety Report 22623893 (Version 1)
Quarter: 2023Q2

REPORT INFORMATION
  Report Type: Spontaneous
  Country: US (occurrence: US)
  Receive Date: 20230621
  Receipt Date: 20230621
  Transmission Date: 20230722
  Serious: No
  Sender: FDA-Public Use
  Company Number: US-PROVENTION BIO, INC.-US-PRAG-23-00015

PATIENT
  Age: 54 Year
  Sex: Female

DRUGS (3)
  1. TZIELD [Suspect]
     Active Substance: TEPLIZUMAB-MZWV
     Indication: Type 1 diabetes mellitus
     Dosage: 1.1 MILLILITER, SINGLE
     Route: 042
     Dates: start: 20230310, end: 20230310
  2. TZIELD [Suspect]
     Active Substance: TEPLIZUMAB-MZWV
     Dosage: 2.2 MILLILITER, SINGLE
     Route: 042
     Dates: start: 20230312, end: 20230312
  3. TZIELD [Suspect]
     Active Substance: TEPLIZUMAB-MZWV
     Dosage: 500 MICROGRAM PER CUBIC METRE, SINGLE
     Route: 042
     Dates: start: 20230314, end: 20230314

REACTIONS (6)
  - Infusion site erythema [Unknown]
  - Infusion site pruritus [Unknown]
  - Myalgia [Recovered/Resolved]
  - Rash [Recovering/Resolving]
  - Urticaria [Unknown]
  - Intentional dose omission [Recovered/Resolved]

NARRATIVE: CASE EVENT DATE: 20230311
